FAERS Safety Report 8484678-1 (Version None)
Quarter: 2012Q3

REPORT INFORMATION
  Report Type: 
  Country: None (occurrence: None)
  Receive Date: 20120703
  Receipt Date: 20120413
  Transmission Date: 20120928
  Serious: No
  Sender: FDA-Public Use
  Company Number: US-TEVA-333443USA

PATIENT
  Sex: Female
  Weight: 65.83 kg

DRUGS (3)
  1. NUVIGIL [Suspect]
     Indication: HYPERSOMNIA
     Dosage: 150 MILLIGRAM;
     Route: 048
     Dates: start: 20120413
  2. LEVOTHYROXINE SODIUM [Concomitant]
     Indication: HYPOTHYROIDISM
     Dosage: .15 MILLIGRAM;
     Route: 048
  3. HYRONINE SODIUM [Concomitant]
     Indication: HYPOTHYROIDISM
     Dosage: .5 MILLIGRAM;
     Route: 048

REACTIONS (4)
  - RHINORRHOEA [None]
  - COUGH [None]
  - WHEEZING [None]
  - OFF LABEL USE [None]
